FAERS Safety Report 7104791-0 (Version None)
Quarter: 2010Q4

REPORT INFORMATION
  Report Type: 
  Country: None (occurrence: None)
  Receive Date: 20101116
  Receipt Date: 20101104
  Transmission Date: 20110411
  Serious: Yes (Hospitalization)
  Sender: FDA-Public Use
  Company Number: JP-JNJFOC-20101102973

PATIENT
  Sex: Male

DRUGS (10)
  1. TOPIRAMATE [Suspect]
     Indication: EPILEPSY
     Route: 048
  2. TOPIRAMATE [Suspect]
     Route: 048
  3. CEFAMEZIN [Concomitant]
     Route: 042
  4. PIPERACILLIN SODIUM [Concomitant]
     Route: 042
  5. PANSPORIN [Concomitant]
     Route: 042
  6. SELENICA-R [Concomitant]
     Route: 048
  7. EXCEGRAN [Concomitant]
     Route: 048
  8. CERCINE [Concomitant]
     Route: 048
  9. MYSTAN [Concomitant]
     Route: 048
  10. MAGNESIUM OXIDE [Concomitant]
     Route: 048

REACTIONS (1)
  - DRUG ERUPTION [None]
